FAERS Safety Report 7249375-9 (Version None)
Quarter: 2011Q1

REPORT INFORMATION
  Report Type: 
  Country: None (occurrence: None)
  Receive Date: 20110128
  Receipt Date: 20101130
  Transmission Date: 20110831
  Serious: Yes (Hospitalization)
  Sender: FDA-Public Use
  Company Number: US-BAYER-201024761NA

PATIENT
  Sex: Female
  Weight: 58.957 kg

DRUGS (8)
  1. ALBUTEROL [Concomitant]
     Indication: ASTHMA EXERCISE INDUCED
     Dosage: UNK
     Dates: start: 20070101
  2. LEXAPRO [Concomitant]
     Indication: DEPRESSION
  3. BENTYL [Concomitant]
     Indication: MUSCLE SPASMS
  4. IBUPROFEN [Concomitant]
  5. ZITHROMAX [Concomitant]
     Indication: UPPER RESPIRATORY TRACT INFECTION
     Dosage: UNK
     Dates: start: 20080908
  6. YAZ [Suspect]
     Indication: ACNE
     Dosage: UNK UNK, QD
     Route: 048
     Dates: start: 20080701, end: 20080801
  7. NULEV [Concomitant]
     Indication: ABDOMINAL PAIN UPPER
  8. ENTEX PSE [Concomitant]
     Indication: NASAL CONGESTION

REACTIONS (11)
  - NASAL CONGESTION [None]
  - MUSCLE SPASMS [None]
  - DYSPNOEA [None]
  - COUGH [None]
  - PLEURITIC PAIN [None]
  - EPISTAXIS [None]
  - CHEST PAIN [None]
  - HAEMOPTYSIS [None]
  - EMOTIONAL DISTRESS [None]
  - PULMONARY EMBOLISM [None]
  - MENORRHAGIA [None]
